FAERS Safety Report 18895974 (Version 1)
Quarter: 2021Q1

REPORT INFORMATION
  Report Type: Report from Study
  Country: None (occurrence: US)
  Receive Date: 20210216
  Receipt Date: 20210216
  Transmission Date: 20210420
  Serious: Yes (Other)
  Sender: FDA-Public Use
  Company Number: US-ABBVIE-20K-163-3670860-00

PATIENT
  Sex: Female
  Weight: 113.5 kg

DRUGS (1)
  1. HUMIRA [Suspect]
     Active Substance: ADALIMUMAB
     Indication: RHEUMATOID ARTHRITIS
     Route: 058
     Dates: end: 2020

REACTIONS (4)
  - Neuropathic arthropathy [Unknown]
  - Postoperative wound infection [Unknown]
  - Therapeutic product effect incomplete [Unknown]
  - Immune system disorder [Unknown]

NARRATIVE: CASE EVENT DATE: 2020
